FAERS Safety Report 4553404-0 (Version None)
Quarter: 2005Q1

REPORT INFORMATION
  Report Type: 
  Country: None (occurrence: None)
  Receive Date: 20050112
  Receipt Date: 20041227
  Transmission Date: 20050727
  Serious: Yes (Hospitalization)
  Sender: FDA-Public Use
  Company Number: 200410582BYL

PATIENT
  Age: 53 Year
  Sex: Female
  Weight: 60 kg

DRUGS (15)
  1. GLUCOBAY [Suspect]
     Indication: DIABETES MELLITUS NON-INSULIN-DEPENDENT
     Dosage: 100 MG, TID, ORAL; 300 MG, TOTAL DAILY, ORAL
     Route: 048
     Dates: start: 20030612, end: 20031217
  2. GLUCOBAY [Suspect]
     Indication: DIABETES MELLITUS NON-INSULIN-DEPENDENT
     Dosage: 100 MG, TID, ORAL; 300 MG, TOTAL DAILY, ORAL
     Route: 048
     Dates: start: 20040405, end: 20040921
  3. GLUCOBAY [Suspect]
     Indication: DIABETES MELLITUS NON-INSULIN-DEPENDENT
     Dosage: 100 MG, TID, ORAL; 300 MG, TOTAL DAILY, ORAL
     Route: 048
     Dates: start: 20040107
  4. LIPITOR [Suspect]
     Indication: HYPERCHOLESTEROLAEMIA
     Dosage: 10 MG, OM, ORAL; 10 MG, TOTAL DAILY,ORAL
     Route: 048
     Dates: start: 20030612, end: 20031217
  5. LIPITOR [Suspect]
     Indication: HYPERCHOLESTEROLAEMIA
     Dosage: 10 MG, OM, ORAL; 10 MG, TOTAL DAILY,ORAL
     Route: 048
     Dates: start: 20040405, end: 20040723
  6. LIPITOR [Suspect]
     Indication: HYPERCHOLESTEROLAEMIA
     Dosage: 10 MG, OM, ORAL; 10 MG, TOTAL DAILY,ORAL
     Route: 048
     Dates: start: 20040107
  7. MICARDIS [Suspect]
     Indication: HYPERTENSION
     Dosage: 20 MG, QD, ORAL; 20 MG, TOTAL DAILY, ORAL
     Route: 048
     Dates: start: 20030612, end: 20031217
  8. MICARDIS [Suspect]
     Indication: HYPERTENSION
     Dosage: 20 MG, QD, ORAL; 20 MG, TOTAL DAILY, ORAL
     Route: 048
     Dates: start: 20040405, end: 20040910
  9. MICARDIS [Suspect]
     Indication: HYPERTENSION
     Dosage: 20 MG, QD, ORAL; 20 MG, TOTAL DAILY, ORAL
     Route: 048
     Dates: start: 20040107
  10. MICARDIS [Suspect]
     Indication: HYPERTENSION
     Dosage: 20 MG, QD, ORAL; 20 MG, TOTAL DAILY, ORAL
     Route: 048
     Dates: start: 20040921
  11. ZYRTEC [Suspect]
     Dosage: ORAL
     Route: 048
     Dates: start: 20031001, end: 20031217
  12. TAKEPRON [Concomitant]
  13. PROMAC [Concomitant]
  14. GASTROM [Concomitant]
  15. ACINON [Concomitant]

REACTIONS (5)
  - ALANINE AMINOTRANSFERASE INCREASED [None]
  - ASPARTATE AMINOTRANSFERASE INCREASED [None]
  - GAMMA-GLUTAMYLTRANSFERASE INCREASED [None]
  - HAEMATEMESIS [None]
  - LIVER DISORDER [None]
